FAERS Safety Report 7669859-9 (Version None)
Quarter: 2011Q3

REPORT INFORMATION
  Report Type: 
  Country: None (occurrence: None)
  Receive Date: 20110808
  Receipt Date: 20110726
  Transmission Date: 20111222
  Serious: No
  Sender: FDA-Public Use
  Company Number: US-B.I. PHARMACEUTICALS,INC./RIDGEFIELD-2011-BP-18517BP

PATIENT
  Sex: Female

DRUGS (6)
  1. SPIRONOLACTONE [Concomitant]
     Indication: CARDIAC FAILURE CONGESTIVE
     Dosage: 25 MG
     Route: 048
     Dates: start: 20100601
  2. CARVEDILOL [Concomitant]
     Indication: CARDIAC FAILURE CONGESTIVE
     Dosage: 5 MG
     Route: 048
     Dates: start: 20100601
  3. SYNTHROID [Concomitant]
     Indication: HYPOTHYROIDISM
     Dosage: 125 MCG
     Route: 048
     Dates: start: 19900101
  4. CRESTOR [Concomitant]
     Indication: BLOOD CHOLESTEROL INCREASED
     Dosage: 5 MG
     Route: 048
     Dates: start: 20100601
  5. DIGOXIN [Concomitant]
     Indication: CARDIAC FAILURE CONGESTIVE
     Dosage: 0.125 MG
     Route: 048
     Dates: start: 20100601
  6. PRADAXA [Suspect]
     Indication: ATRIAL FIBRILLATION
     Dosage: 300 MG
     Route: 048
     Dates: start: 20110505

REACTIONS (1)
  - FAECAL VOLUME DECREASED [None]
